FAERS Safety Report 6188428-3 (Version None)
Quarter: 2009Q2

REPORT INFORMATION
  Report Type: 
  Country: None (occurrence: None)
  Receive Date: 20090513
  Receipt Date: 20090504
  Transmission Date: 20091009
  Serious: Yes (Hospitalization)
  Sender: FDA-Public Use
  Company Number: AU-BAYER-200920351GPV

PATIENT
  Age: 34 Year
  Sex: Female

DRUGS (2)
  1. YASMIN [Suspect]
     Indication: CONTRACEPTION
     Dates: start: 20060101, end: 20071201
  2. YASMIN [Suspect]

REACTIONS (3)
  - ANGINA PECTORIS [None]
  - HYPOAESTHESIA [None]
  - PAIN IN EXTREMITY [None]
